FAERS Safety Report 12884116 (Version 2)
Quarter: 2016Q4

REPORT INFORMATION
  Report Type: Spontaneous
  Country: CZ (occurrence: CZ)
  Receive Date: 20161026
  Receipt Date: 20161026
  Transmission Date: 20170207
  Serious: Yes (Death, Hospitalization)
  Sender: FDA-Public Use
  Company Number: CZ-ABBVIE-16K-217-1759417-00

PATIENT
  Sex: Male

DRUGS (4)
  1. METHOTREXATE. [Concomitant]
     Active Substance: METHOTREXATE
     Dates: start: 20130321, end: 20130602
  2. METHOTREXATE. [Concomitant]
     Active Substance: METHOTREXATE
     Indication: PSORIATIC ARTHROPATHY
     Dates: start: 20120112, end: 20130115
  3. HUMIRA [Suspect]
     Active Substance: ADALIMUMAB
     Route: 058
     Dates: start: 20130730
  4. HUMIRA [Suspect]
     Active Substance: ADALIMUMAB
     Indication: PSORIATIC ARTHROPATHY
     Route: 058
     Dates: start: 20090828, end: 20130530

REACTIONS (27)
  - Death [Fatal]
  - Mucosal inflammation [Unknown]
  - Tonsillitis streptococcal [Recovered/Resolved]
  - Blood urea increased [Unknown]
  - Gastrointestinal haemorrhage [Recovered/Resolved]
  - Cerebral disorder [Recovered/Resolved]
  - Fatigue [Unknown]
  - Anaemia [Unknown]
  - Dermatitis exfoliative [Unknown]
  - Cardiac failure [Unknown]
  - Bone marrow failure [Unknown]
  - Polyneuropathy [Not Recovered/Not Resolved]
  - Duodenal ulcer [Recovered/Resolved]
  - Cardiovascular disorder [Recovered/Resolved]
  - Respiratory failure [Recovered/Resolved]
  - Tonsillitis streptococcal [Unknown]
  - Neutropenic sepsis [Unknown]
  - Gastrointestinal inflammation [Recovered/Resolved]
  - Aphthous ulcer [Recovered/Resolved]
  - Bone marrow failure [Recovered/Resolved]
  - Diarrhoea [Unknown]
  - Escherichia infection [Recovered/Resolved]
  - Gastric ulcer [Recovered/Resolved]
  - Sepsis [Recovered/Resolved]
  - Renal failure [Recovered/Resolved]
  - Platelet count decreased [Unknown]
  - Blood creatinine increased [Unknown]

NARRATIVE: CASE EVENT DATE: 2013
